FAERS Safety Report 6734945-4 (Version None)
Quarter: 2010Q2

REPORT INFORMATION
  Report Type: 
  Country: None (occurrence: None)
  Receive Date: 20100521
  Receipt Date: 20100512
  Transmission Date: 20101027
  Serious: Yes (Other)
  Sender: FDA-Public Use
  Company Number: US-PFIZER INC-2010060575

PATIENT
  Sex: Female

DRUGS (3)
  1. NEURONTIN [Suspect]
     Indication: NEUROPATHY PERIPHERAL
     Dosage: 300 MG, DAILY AT NIGHT
     Route: 048
     Dates: start: 20100321
  2. NEURONTIN [Suspect]
     Indication: HYPOAESTHESIA
  3. REVLIMID [Concomitant]
     Dosage: 50 MG, UNK

REACTIONS (8)
  - BLOOD COUNT ABNORMAL [None]
  - BLOOD IMMUNOGLOBULIN G INCREASED [None]
  - DIZZINESS [None]
  - HAEMOGLOBIN DECREASED [None]
  - IMMUNOGLOBULINS INCREASED [None]
  - OEDEMA PERIPHERAL [None]
  - PAIN [None]
  - PROTEIN TOTAL ABNORMAL [None]
